FAERS Safety Report 9836770 (Version 1)
Quarter: 2014Q1

REPORT INFORMATION
  Report Type: Spontaneous
  Country: US (occurrence: US)
  Receive Date: 20140123
  Receipt Date: 20140123
  Transmission Date: 20141002
  Serious: No
  Sender: FDA-Public Use
  Company Number: US-PFIZER INC-2014014192

PATIENT
  Age: 58 Year
  Sex: Female

DRUGS (1)
  1. NAVANE [Suspect]
     Dosage: UNK
     Dates: start: 1987, end: 2011

REACTIONS (5)
  - Tardive dyskinesia [Unknown]
  - Torticollis [Unknown]
  - Oromandibular dystonia [Unknown]
  - Malaise [Unknown]
  - Mental disorder [Not Recovered/Not Resolved]
